FAERS Safety Report 7092984-0 (Version None)
Quarter: 2010Q4

REPORT INFORMATION
  Report Type: 
  Country: None (occurrence: None)
  Receive Date: 20101110
  Receipt Date: 20081222
  Transmission Date: 20110411
  Serious: No
  Sender: FDA-Public Use
  Company Number: US-KINGPHARMUSA00001-K200801445

PATIENT
  Age: 81 Year
  Sex: Female

DRUGS (3)
  1. VIROPTIC [Suspect]
     Indication: HERPES ZOSTER
     Dosage: UNK
     Route: 047
  2. BACITRACIN [Concomitant]
     Dosage: UNK
  3. VALTREX [Concomitant]
     Dosage: UNK

REACTIONS (1)
  - DRUG INEFFECTIVE [None]
